FAERS Safety Report 16715624 (Version 3)
Quarter: 2020Q1

REPORT INFORMATION
  Report Type: Spontaneous
  Country: US (occurrence: US)
  Receive Date: 20190819
  Receipt Date: 20200320
  Transmission Date: 20200409
  Serious: Yes (Hospitalization)
  Sender: FDA-Public Use
  Company Number: US-CATALYST PHARMACEUTICALS, INC-2019CAT00319

PATIENT
  Age: 77 Year
  Sex: Female
  Weight: 43.99 kg

DRUGS (9)
  1. FIRDAPSE [Suspect]
     Active Substance: AMIFAMPRIDINE
     Dosage: 15 MG, 4X/DAY (9:00 AM, 1:00 PM, 5:00 PM, 9:00 PM)
     Route: 048
     Dates: start: 201902
  2. VITAMIN D [Concomitant]
     Active Substance: VITAMIN D NOS
     Dosage: 1000 IU, 1X/DAY
  3. FIRDAPSE [Suspect]
     Active Substance: AMIFAMPRIDINE
     Indication: MYASTHENIC SYNDROME
     Dosage: 20 MG, 4X/DAY
     Route: 048
     Dates: end: 2019
  4. ASPIRIN. [Concomitant]
     Active Substance: ASPIRIN
     Dosage: 81 MG, 1X/DAY
  5. PRAVASTATIN. [Concomitant]
     Active Substance: PRAVASTATIN
     Dosage: 10 MG, 1X/DAY
  6. METOPROLOL. [Concomitant]
     Active Substance: METOPROLOL
     Dosage: 12.5 MG, 1X/DAY AT BEDTIME
  7. FIRDAPSE [Suspect]
     Active Substance: AMIFAMPRIDINE
     Dosage: 2 TABLETS, 1X/DAY (5:00 AM)
     Route: 048
     Dates: start: 201902
  8. AMIFAMPRIDINE [Suspect]
     Active Substance: AMIFAMPRIDINE
     Indication: MYASTHENIC SYNDROME
     Dosage: 15 MG, 4X/DAY
     Route: 048
     Dates: start: 1996
  9. MOXIFLOXACIN. [Suspect]
     Active Substance: MOXIFLOXACIN
     Dosage: UNK

REACTIONS (15)
  - Hypoaesthesia [Recovering/Resolving]
  - Atrial fibrillation [Recovering/Resolving]
  - Acute myocardial infarction [Recovering/Resolving]
  - Chronic obstructive pulmonary disease [Recovering/Resolving]
  - Malnutrition [Unknown]
  - Hyponatraemia [Recovered/Resolved]
  - Hypotension [Unknown]
  - Choking [Unknown]
  - Fall [Unknown]
  - Peripheral swelling [Not Recovered/Not Resolved]
  - Pneumonia [Recovering/Resolving]
  - Upper respiratory tract infection [Unknown]
  - Pulmonary mass [Unknown]
  - Chest pain [Recovering/Resolving]
  - Product quality issue [Unknown]

NARRATIVE: CASE EVENT DATE: 2019
